FAERS Safety Report 4353072-7 (Version None)
Quarter: 2004Q2

REPORT INFORMATION
  Report Type: 
  Country: None (occurrence: None)
  Receive Date: 20040429
  Receipt Date: 20040422
  Transmission Date: 20050107
  Serious: No
  Sender: FDA-Public Use
  Company Number: 2004205135FR

PATIENT
  Age: 36 Year
  Sex: Male
  Weight: 70 kg

DRUGS (9)
  1. ZYVOX [Suspect]
     Indication: ARTHRITIS BACTERIAL
     Dosage: 600 MG, BID, ORAL
     Route: 048
     Dates: start: 20040219
  2. MORPHINE [Concomitant]
  3. GENTAMICIN [Concomitant]
  4. DEXCHLORPHENIRAMINE MALEATE [Concomitant]
  5. ZYRTEC [Concomitant]
  6. TRANXENE [Concomitant]
  7. SINGULAIR [Concomitant]
  8. NALCRON [Concomitant]
  9. PHYTONADIONE [Concomitant]

REACTIONS (1)
  - HEPATITIS ACUTE [None]
